FAERS Safety Report 13166767 (Version 3)
Quarter: 2017Q1

REPORT INFORMATION
  Report Type: Spontaneous
  Country: US (occurrence: US)
  Receive Date: 20170131
  Receipt Date: 20170206
  Transmission Date: 20170428
  Serious: Yes (Other)
  Sender: FDA-Public Use
  Company Number: US-TAKEDA-2017MPI000634

PATIENT
  Sex: Male
  Weight: 113.3 kg

DRUGS (1)
  1. NINLARO [Suspect]
     Active Substance: IXAZOMIB
     Indication: PLASMA CELL MYELOMA
     Dosage: 4 MG, UNK
     Route: 048
     Dates: start: 20170110

REACTIONS (3)
  - Epistaxis [Unknown]
  - Haemoglobin abnormal [Unknown]
  - Blood glucose abnormal [Unknown]
